FAERS Safety Report 4264324-3 (Version None)
Quarter: 2004Q1

REPORT INFORMATION
  Report Type: 
  Country: None (occurrence: None)
  Receive Date: 20040105
  Receipt Date: 20031218
  Transmission Date: 20041129
  Serious: Yes (Death, Life-Threatening)
  Sender: FDA-Public Use
  Company Number: 200308880

PATIENT
  Age: 66 Year
  Sex: Male

DRUGS (5)
  1. STREPTOKINASE (STREPTOKINASE) [Suspect]
     Indication: MYOCARDIAL INFARCTION
     Dosage: 600000 IU DAILY IV
     Route: 042
     Dates: start: 20031102, end: 20031102
  2. ASPIRIN [Suspect]
     Indication: MYOCARDIAL INFARCTION
     Dosage: 200 MG DAILY PO
     Route: 048
     Dates: start: 20031102, end: 20031103
  3. ENOXAPARIN OR PLACEBO VS. HEPARIN OR PLACEBO [Suspect]
     Dosage: IV
     Route: 042
     Dates: start: 20031102, end: 20031102
  4. ISOSORBIDE [Concomitant]
  5. ENALAPRIL MALEATE [Concomitant]

REACTIONS (6)
  - ANAPHYLACTIC REACTION [None]
  - BRONCHOSPASM [None]
  - CARDIAC PROCEDURE COMPLICATION [None]
  - CARDIOGENIC SHOCK [None]
  - CORONARY ARTERY OCCLUSION [None]
  - OLIGURIA [None]
